FAERS Safety Report 11623559 (Version 1)
Quarter: 2015Q4

REPORT INFORMATION
  Report Type: Spontaneous
  Country: US (occurrence: US)
  Receive Date: 20151013
  Receipt Date: 20151013
  Transmission Date: 20160304
  Serious: No
  Sender: FDA-Public Use
  Company Number: US-JNJFOC-20150823873

PATIENT
  Age: 70 Year
  Sex: Male
  Weight: 72.58 kg

DRUGS (4)
  1. ALL OTHER THERAPEUTIC PRODUCT [Concomitant]
     Active Substance: UNSPECIFIED INGREDIENT
     Indication: NUTRITIONAL SUPPLEMENTATION
     Dosage: DAILY
     Route: 065
  2. GLUCOSAMINE [Concomitant]
     Active Substance: GLUCOSAMINE
     Indication: NUTRITIONAL SUPPLEMENTATION
     Dosage: DAILY
     Route: 065
  3. CHONDROITIN [Concomitant]
     Active Substance: CHONDROITIN
     Indication: NUTRITIONAL SUPPLEMENTATION
     Dosage: DAILY
     Route: 065
  4. TYLENOL EXTRA STRENGTH [Suspect]
     Active Substance: ACETAMINOPHEN
     Indication: ARTHRALGIA
     Dosage: AS NEEDED
     Route: 048

REACTIONS (2)
  - Drug ineffective [Unknown]
  - Underdose [Unknown]
